FAERS Safety Report 25395812 (Version 1)
Quarter: 2025Q2

REPORT INFORMATION
  Report Type: Spontaneous
  Country: US (occurrence: US)
  Receive Date: 20250604
  Receipt Date: 20250604
  Transmission Date: 20250716
  Serious: No
  Sender: LUNDBECK
  Company Number: US-LUNDBECK-DKLU4015250

PATIENT
  Age: 27 Year
  Sex: Male
  Weight: 93.894 kg

DRUGS (8)
  1. SABRIL [Suspect]
     Active Substance: VIGABATRIN
     Indication: Partial seizures
     Route: 048
     Dates: start: 202501
  2. SABRIL [Suspect]
     Active Substance: VIGABATRIN
     Indication: Focal dyscognitive seizures
  3. SABRIL [Suspect]
     Active Substance: VIGABATRIN
     Indication: Epilepsy
  4. SABRIL [Suspect]
     Active Substance: VIGABATRIN
     Indication: Lennox-Gastaut syndrome
  5. SABRIL [Suspect]
     Active Substance: VIGABATRIN
     Indication: Status epilepticus
  6. EPIDIOLEX [Concomitant]
     Active Substance: CANNABIDIOL
     Indication: Lennox-Gastaut syndrome
     Route: 048
  7. EPIDIOLEX [Concomitant]
     Active Substance: CANNABIDIOL
     Indication: Epilepsy
  8. EPIDIOLEX [Concomitant]
     Active Substance: CANNABIDIOL
     Indication: Seizure

REACTIONS (1)
  - Weight decreased [Unknown]
